FAERS Safety Report 11468440 (Version 2)
Quarter: 2015Q3

REPORT INFORMATION
  Report Type: Spontaneous
  Country: US (occurrence: US)
  Receive Date: 20150903
  Receipt Date: 20150903
  Transmission Date: 20151125
  Serious: No
  Sender: FDA-Public Use
  Company Number: US-ELI_LILLY_AND_COMPANY-US201109001735

PATIENT
  Sex: Female

DRUGS (2)
  1. CYMBALTA [Suspect]
     Active Substance: DULOXETINE HYDROCHLORIDE
     Indication: FIBROMYALGIA
     Dosage: 60 MG, UNK
     Dates: start: 20101217
  2. CYMBALTA [Suspect]
     Active Substance: DULOXETINE HYDROCHLORIDE
     Dosage: UNK, UNKNOWN
     Dates: end: 201103

REACTIONS (8)
  - Fungal test positive [Unknown]
  - Bronchitis [Unknown]
  - Candida infection [Recovered/Resolved]
  - Drug ineffective [Recovered/Resolved]
  - Calcinosis [Recovered/Resolved]
  - Weight increased [Recovering/Resolving]
  - Vulvovaginal mycotic infection [Unknown]
  - Diarrhoea [Unknown]
